FAERS Safety Report 7227291-6 (Version None)
Quarter: 2011Q1

REPORT INFORMATION
  Report Type: 
  Country: None (occurrence: None)
  Receive Date: 20110111
  Receipt Date: 20110111
  Transmission Date: 20110831
  Serious: Yes (Hospitalization)
  Sender: FDA-Public Use
  Company Number: None

PATIENT
  Age: 59 Year
  Sex: Male

DRUGS (1)
  1. OXACILLIN [Suspect]
     Indication: INFECTION
     Dosage: 2GM Q4HR IV
     Route: 042

REACTIONS (17)
  - VIRAL INFECTION [None]
  - APHTHOUS STOMATITIS [None]
  - ASTHENIA [None]
  - HYPERHIDROSIS [None]
  - HYPOPHAGIA [None]
  - CONVULSION [None]
  - PUPIL FIXED [None]
  - PAIN [None]
  - NAUSEA [None]
  - DIZZINESS [None]
  - CANDIDIASIS [None]
  - DECREASED APPETITE [None]
  - DYSKINESIA [None]
  - MALAISE [None]
  - DIARRHOEA [None]
  - TREMOR [None]
  - FATIGUE [None]
